APPROVED DRUG PRODUCT: CYPROHEPTADINE HYDROCHLORIDE
Active Ingredient: CYPROHEPTADINE HYDROCHLORIDE
Strength: 2MG/5ML
Dosage Form/Route: SYRUP;ORAL
Application: A089021 | Product #001
Applicant: NASKA PHARMACAL CO INC DIV RUGBY DARBY GROUP COSMETICS
Approved: Dec 21, 1987 | RLD: No | RS: No | Type: DISCN